FAERS Safety Report 10631751 (Version 4)
Quarter: 2015Q1

REPORT INFORMATION
  Report Type: Report from Study
  Country: CA (occurrence: CA)
  Receive Date: 20141205
  Receipt Date: 20150210
  Transmission Date: 20150720
  Serious: Yes (Other)
  Sender: FDA-Public Use
  Company Number: PHHY2014CA147782

PATIENT
  Sex: Female

DRUGS (2)
  1. NEURONTIN [Concomitant]
     Active Substance: GABAPENTIN
     Indication: PRODUCT USED FOR UNKNOWN INDICATION
     Dosage: UNK UKN, PRN
     Route: 065
  2. GILENYA [Suspect]
     Active Substance: FINGOLIMOD HYDROCHLORIDE
     Indication: MULTIPLE SCLEROSIS
     Dosage: 0.5 MG, QD
     Route: 048
     Dates: start: 20110929

REACTIONS (6)
  - Blindness unilateral [Unknown]
  - Vitreous detachment [Unknown]
  - Eye irritation [Recovered/Resolved]
  - Migraine [Not Recovered/Not Resolved]
  - Photopsia [Not Recovered/Not Resolved]
  - Vision blurred [Not Recovered/Not Resolved]
